FAERS Safety Report 6816794-1 (Version None)
Quarter: 2010Q3

REPORT INFORMATION
  Report Type: 
  Country: None (occurrence: None)
  Receive Date: 20100706
  Receipt Date: 20100625
  Transmission Date: 20110219
  Serious: Yes (Other)
  Sender: FDA-Public Use
  Company Number: BE-JNJFOC-20100605096

PATIENT
  Sex: Female

DRUGS (1)
  1. SPORANOX [Suspect]
     Indication: VAGINAL DISORDER
     Route: 065

REACTIONS (5)
  - EUSTACHIAN TUBE DISORDER [None]
  - FATIGUE [None]
  - HEPATIC FUNCTION ABNORMAL [None]
  - PAIN [None]
  - RESPIRATORY TRACT INFECTION [None]
